FAERS Safety Report 10477485 (Version 1)
Quarter: 2014Q3

REPORT INFORMATION
  Report Type: Spontaneous
  Country: US (occurrence: None)
  Receive Date: 20140925
  Receipt Date: 20140925
  Transmission Date: 20150326
  Serious: Yes (Hospitalization)
  Sender: FDA-Public Use
  Company Number: None

PATIENT
  Age: 74 Year
  Sex: Male
  Weight: 72.57 kg

DRUGS (1)
  1. WARFARIN [Suspect]
     Active Substance: WARFARIN
     Indication: CEREBROVASCULAR ACCIDENT
     Dosage: 5MG M, W, F, DAILY, ORALLY
     Route: 048
     Dates: start: 20090327

REACTIONS (4)
  - Transient ischaemic attack [None]
  - Feeling abnormal [None]
  - Vision blurred [None]
  - Cerebral haemorrhage [None]

NARRATIVE: CASE EVENT DATE: 20140922
